FAERS Safety Report 10163529 (Version 1)
Quarter: 2014Q2

REPORT INFORMATION
  Report Type: Spontaneous
  Country: US (occurrence: US)
  Receive Date: 20140509
  Receipt Date: 20140509
  Transmission Date: 20141212
  Serious: No
  Sender: FDA-Public Use
  Company Number: US-PFIZER INC-2014128400

PATIENT
  Age: 43 Year
  Sex: Female

DRUGS (1)
  1. XELJANZ [Suspect]
     Dosage: UNK

REACTIONS (4)
  - Headache [Unknown]
  - Dizziness [Unknown]
  - Anger [Unknown]
  - Activities of daily living impaired [Unknown]
